FAERS Safety Report 6853261-3 (Version None)
Quarter: 2010Q3

REPORT INFORMATION
  Report Type: 
  Country: None (occurrence: None)
  Receive Date: 20100717
  Receipt Date: 20080115
  Transmission Date: 20110219
  Serious: No
  Sender: FDA-Public Use
  Company Number: US-PFIZER INC-2007101231

PATIENT
  Sex: Female

DRUGS (2)
  1. CHANTIX [Suspect]
  2. LAXATIVES [Concomitant]

REACTIONS (8)
  - ABDOMINAL DISCOMFORT [None]
  - CONSTIPATION [None]
  - FLATULENCE [None]
  - MALAISE [None]
  - MOOD ALTERED [None]
  - NAUSEA [None]
  - VOMITING [None]
  - WEIGHT INCREASED [None]
